FAERS Safety Report 21710899 (Version 2)
Quarter: 2022Q4

REPORT INFORMATION
  Report Type: Other
  Country: GB (occurrence: GB)
  Receive Date: 20221212
  Receipt Date: 20221222
  Transmission Date: 20230112
  Serious: Yes (Hospitalization)
  Sender: FDA-Public Use
  Company Number: GB-MHRA-MED-202211241154172620-KFTSP

PATIENT
  Age: 25 Year
  Sex: Male
  Weight: 65 kg

DRUGS (4)
  1. EMTRICITABINE\TENOFOVIR DISOPROXIL FUMARATE [Suspect]
     Active Substance: EMTRICITABINE\TENOFOVIR DISOPROXIL FUMARATE
     Indication: Adverse drug reaction
     Dosage: UNK UNK, QD, 200/245 MILLIGRAM
     Route: 065
     Dates: start: 20221010, end: 20221110
  2. EMTRICITABINE\TENOFOVIR DISOPROXIL FUMARATE [Suspect]
     Active Substance: EMTRICITABINE\TENOFOVIR DISOPROXIL FUMARATE
     Indication: Prophylaxis against HIV infection
  3. TENOFOVIR DISOPROXIL PHOSPHATE [Suspect]
     Active Substance: TENOFOVIR DISOPROXIL PHOSPHATE
     Indication: Adverse drug reaction
     Dosage: 245 MILLIGRAM, QD
     Route: 065
  4. TENOFOVIR DISOPROXIL PHOSPHATE [Suspect]
     Active Substance: TENOFOVIR DISOPROXIL PHOSPHATE
     Indication: Prophylaxis against HIV infection

REACTIONS (4)
  - Skin burning sensation [Recovering/Resolving]
  - Paraesthesia [Recovering/Resolving]
  - Asthenia [Recovering/Resolving]
  - Palpitations [Recovering/Resolving]

NARRATIVE: CASE EVENT DATE: 20221001
